FAERS Safety Report 4983451-6 (Version None)
Quarter: 2006Q2

REPORT INFORMATION
  Report Type: 
  Country: None (occurrence: None)
  Receive Date: 20060426
  Receipt Date: 20051122
  Transmission Date: 20061013
  Serious: Yes (Hospitalization)
  Sender: FDA-Public Use
  Company Number: US-MERCK-0511USA04048

PATIENT
  Age: 41 Year
  Sex: Female
  Weight: 84 kg

DRUGS (13)
  1. VIOXX [Suspect]
     Indication: CHEST PAIN
     Route: 048
     Dates: start: 19991214, end: 20041007
  2. VIOXX [Suspect]
     Indication: HYPOAESTHESIA
     Route: 048
     Dates: start: 19991214, end: 20041007
  3. TOPAMAX [Suspect]
     Route: 065
     Dates: start: 20030619, end: 20031103
  4. ROBAXIN [Concomitant]
     Route: 065
     Dates: start: 20000816, end: 20000925
  5. VICOPROFEN [Concomitant]
     Route: 065
     Dates: start: 20000816, end: 20000921
  6. VICODIN [Concomitant]
     Route: 065
     Dates: start: 20030323
  7. MEDROL [Concomitant]
     Route: 065
  8. PREVACID [Concomitant]
     Route: 065
  9. AMBIEN [Concomitant]
     Route: 065
  10. HYDROCHLOROTHIAZIDE [Concomitant]
     Route: 065
  11. PROZAC [Concomitant]
     Route: 065
  12. EFFEXOR [Concomitant]
     Route: 065
  13. XANAX [Concomitant]
     Route: 065

REACTIONS (35)
  - ANXIETY [None]
  - ARTHRALGIA [None]
  - AXILLARY PAIN [None]
  - BACK PAIN [None]
  - BURSITIS [None]
  - CHEST PAIN [None]
  - CLAVICLE FRACTURE [None]
  - DEPRESSION [None]
  - DIARRHOEA [None]
  - DIASTOLIC DYSFUNCTION [None]
  - DYSFUNCTIONAL UTERINE BLEEDING [None]
  - ELECTROCARDIOGRAM QT PROLONGED [None]
  - ELECTROCARDIOGRAM ST-T CHANGE [None]
  - FACIAL PALSY [None]
  - FALL [None]
  - GASTROOESOPHAGEAL REFLUX DISEASE [None]
  - HYPERTENSION [None]
  - HYPOAESTHESIA [None]
  - HYSTERECTOMY [None]
  - INSOMNIA [None]
  - INTERNATIONAL NORMALISED RATIO INCREASED [None]
  - MUSCLE SPASMS [None]
  - NAUSEA [None]
  - NECK INJURY [None]
  - NUCLEAR MAGNETIC RESONANCE IMAGING BRAIN ABNORMAL [None]
  - OSTEOARTHRITIS [None]
  - PAIN IN EXTREMITY [None]
  - PARAESTHESIA [None]
  - POST-TRAUMATIC STRESS DISORDER [None]
  - PULMONARY EMBOLISM [None]
  - RIB FRACTURE [None]
  - ROAD TRAFFIC ACCIDENT [None]
  - SHOULDER PAIN [None]
  - THROMBOSIS [None]
  - UTERINE DISORDER [None]
